FAERS Safety Report 18534033 (Version 1)
Quarter: 2020Q4

REPORT INFORMATION
  Report Type: Spontaneous
  Country: CN (occurrence: CN)
  Receive Date: 20201123
  Receipt Date: 20201123
  Transmission Date: 20210114
  Serious: Yes (Other)
  Sender: FDA-Public Use
  Company Number: CN-PFIZER INC-2020457546

PATIENT
  Age: 8 Year
  Sex: Male

DRUGS (1)
  1. METHOTREXATE. [Suspect]
     Active Substance: METHOTREXATE
     Indication: CHEMOTHERAPY
     Dosage: 4.8 G, 1X/DAY
     Route: 041
     Dates: start: 20201104, end: 20201109

REACTIONS (1)
  - Anal ulcer [Recovering/Resolving]

NARRATIVE: CASE EVENT DATE: 20201110
